FAERS Safety Report 7625401-X (Version None)
Quarter: 2011Q3

REPORT INFORMATION
  Report Type: 
  Country: None (occurrence: None)
  Receive Date: 20110721
  Receipt Date: 20110713
  Transmission Date: 20111222
  Serious: Yes (Hospitalization, Other)
  Sender: FDA-Public Use
  Company Number: US-BAYER-2011-020945

PATIENT
  Age: 30 Year
  Sex: Female
  Weight: 77 kg

DRUGS (4)
  1. YASMIN [Suspect]
     Indication: CONTRACEPTION
     Dosage: UNK
     Dates: start: 20040601, end: 20050301
  2. ASCORBIC ACID [Concomitant]
  3. ALLERGY MEDICATION [Concomitant]
     Route: 048
  4. ANALGESICS [Concomitant]
     Dosage: UNK UNK, PRN

REACTIONS (8)
  - PAIN [None]
  - PULMONARY EMBOLISM [None]
  - DYSPNOEA [None]
  - THROMBOSIS [None]
  - SKIN DISORDER [None]
  - DEPRESSION [None]
  - STRESS [None]
  - ALOPECIA [None]
